FAERS Safety Report 17968046 (Version 1)
Quarter: 2020Q3

REPORT INFORMATION
  Report Type: Other
  Country: FR (occurrence: FR)
  Receive Date: 20200701
  Receipt Date: 20200701
  Transmission Date: 20201103
  Serious: Yes (Hospitalization)
  Sender: FDA-Public Use
  Company Number: FR-COVIS PHARMA B.V.-2020COV00267

PATIENT
  Age: 62 Year
  Sex: Male
  Weight: 95 kg

DRUGS (9)
  1. FUROSEMIDE. [Concomitant]
     Active Substance: FUROSEMIDE
  2. PERINDOPRIL [Concomitant]
     Active Substance: PERINDOPRIL
  3. OMEPRAZOLE MAGNESIUM. [Suspect]
     Active Substance: OMEPRAZOLE MAGNESIUM
     Indication: PRODUCT USED FOR UNKNOWN INDICATION
     Dosage: 20 MG, 1X/DAY
     Route: 048
     Dates: end: 20200529
  4. EUPRESSYL [Concomitant]
     Active Substance: URAPIDIL
  5. INDAPAMIDE. [Suspect]
     Active Substance: INDAPAMIDE
     Indication: HYPERTENSION
     Dosage: UNK
     Route: 048
     Dates: end: 20200529
  6. LERCANIDIPINE [Concomitant]
     Active Substance: LERCANIDIPINE
  7. SPIRAMYCINE COQUELUSEDAL [Suspect]
     Active Substance: SPIRAMYCIN ADIPATE
     Indication: TOOTH INFECTION
     Dosage: UNK
     Route: 048
     Dates: start: 20200512, end: 20200527
  8. METRONIDAZOLE. [Suspect]
     Active Substance: METRONIDAZOLE
     Indication: TOOTH INFECTION
     Dosage: UNK
     Route: 048
     Dates: start: 20200512, end: 20200527
  9. FLECAINIDE ACETATE. [Concomitant]
     Active Substance: FLECAINIDE ACETATE

REACTIONS (1)
  - Rash pustular [Recovering/Resolving]

NARRATIVE: CASE EVENT DATE: 20200520
